FAERS Safety Report 9239938 (Version 1)
Quarter: 2013Q2

REPORT INFORMATION
  Report Type: Report from Study
  Country: MX (occurrence: MX)
  Receive Date: 20130418
  Receipt Date: 20130418
  Transmission Date: 20140414
  Serious: Yes (Other)
  Sender: FDA-Public Use
  Company Number: PHHY2013MX034761

PATIENT
  Age: 83 Year
  Sex: Male

DRUGS (2)
  1. STALEVO [Suspect]
     Indication: PARKINSON^S DISEASE
     Dosage: 2 DF (200/150/37.5 MG), DAILY
     Route: 048
     Dates: start: 20091104
  2. AVODART [Concomitant]
     Indication: BENIGN PROSTATIC HYPERPLASIA
     Dosage: UNK UKN, UNK

REACTIONS (2)
  - Dislocation of vertebra [Not Recovered/Not Resolved]
  - Fall [Not Recovered/Not Resolved]
